FAERS Safety Report 6139392-4 (Version None)
Quarter: 2009Q1

REPORT INFORMATION
  Report Type: 
  Country: None (occurrence: None)
  Receive Date: 20090321
  Receipt Date: 20090313
  Transmission Date: 20090719
  Serious: Yes (Death, Hospitalization)
  Sender: FDA-Public Use
  Company Number: US025150

PATIENT
  Age: 63 Year
  Sex: Male
  Weight: 99.3 kg

DRUGS (2)
  1. TRISENOX [Suspect]
     Indication: ACUTE MYELOID LEUKAEMIA
     Dosage: 24 MG (24 MG, 1 IN 1 D), INTRAVENOUS
     Route: 042
     Dates: start: 20081125, end: 20081202
  2. CYTARABINE [Suspect]
     Indication: ACUTE MYELOID LEUKAEMIA
     Dosage: 44 MG (22 MG, 2 IN 1 D) SUBCUTANEOUS
     Route: 058
     Dates: start: 20081125, end: 20081202

REACTIONS (9)
  - BLOOD BILIRUBIN INCREASED [None]
  - CARDIO-RESPIRATORY ARREST [None]
  - HYPOTENSION [None]
  - INCREASED BRONCHIAL SECRETION [None]
  - INCREASED UPPER AIRWAY SECRETION [None]
  - MUCOSAL INFLAMMATION [None]
  - NEUTROPENIC SEPSIS [None]
  - RESPIRATORY DISTRESS [None]
  - SEPTIC SHOCK [None]
